FAERS Safety Report 7240205-8 (Version None)
Quarter: 2011Q1

REPORT INFORMATION
  Report Type: 
  Country: None (occurrence: None)
  Receive Date: 20110124
  Receipt Date: 20110106
  Transmission Date: 20110831
  Serious: Yes (Hospitalization, Other)
  Sender: FDA-Public Use
  Company Number: US-ROCHE-731052

PATIENT
  Sex: Male
  Weight: 76.2 kg

DRUGS (1)
  1. ACCUTANE [Suspect]
     Indication: ACNE
     Route: 065
     Dates: start: 19850101, end: 19850901

REACTIONS (12)
  - DEEP VEIN THROMBOSIS [None]
  - CROHN'S DISEASE [None]
  - ILEAL STENOSIS [None]
  - GASTROINTESTINAL INJURY [None]
  - NEPHROLITHIASIS [None]
  - FISTULA [None]
  - ILEAL FISTULA [None]
  - ORAL HERPES [None]
  - DEPRESSION [None]
  - PULMONARY EMBOLISM [None]
  - ILEUS [None]
  - SMALL INTESTINAL OBSTRUCTION [None]
